FAERS Safety Report 9991826 (Version 1)
Quarter: 2014Q1

REPORT INFORMATION
  Report Type: Spontaneous
  Country: US (occurrence: US)
  Receive Date: 20140310
  Receipt Date: 20140310
  Transmission Date: 20141002
  Serious: Yes (Hospitalization, Other)
  Sender: FDA-Public Use
  Company Number: US-PFIZER INC-2014065611

PATIENT
  Age: 72 Year
  Sex: Female

DRUGS (14)
  1. LYRICA [Suspect]
     Dosage: 100 MG, 3X/DAY (100MG 1 PO TID)
     Route: 048
  2. NITROFURANTOIN [Concomitant]
     Dosage: UNK
  3. OXYBUTYNIN [Concomitant]
     Dosage: UNK
  4. DILTIAZEM [Concomitant]
     Dosage: UNK
  5. AVONEX [Concomitant]
     Dosage: UNK
  6. DICYCLOMINE [Concomitant]
     Dosage: UNK
  7. NAMENDA [Concomitant]
     Dosage: UNK
  8. METAMUCIL [Concomitant]
     Dosage: UNK
  9. GLUCOSAMINE [Concomitant]
     Dosage: UNK
  10. ADVIL [Concomitant]
     Dosage: UNK
  11. MIRALAX [Concomitant]
     Dosage: UNK
  12. CALCIUM [Concomitant]
     Dosage: UNK
  13. CITRACAL [Concomitant]
     Dosage: UNK
  14. VITAMIN E [Concomitant]
     Dosage: UNK

REACTIONS (1)
  - Multiple sclerosis relapse [Recovering/Resolving]
